FAERS Safety Report 10209717 (Version 1)
Quarter: 2014Q2

REPORT INFORMATION
  Report Type: Spontaneous
  Country: US (occurrence: US)
  Receive Date: 20140602
  Receipt Date: 20140602
  Transmission Date: 20141212
  Serious: No
  Sender: FDA-Public Use
  Company Number: US-BIOGENIDEC-2014BI051339

PATIENT
  Sex: Female

DRUGS (1)
  1. AVONEX [Suspect]
     Indication: MULTIPLE SCLEROSIS
     Route: 030

REACTIONS (8)
  - White blood cell disorder [Unknown]
  - Cystitis [Unknown]
  - Red blood cell abnormality [Unknown]
  - Platelet count increased [Unknown]
  - Sensory disturbance [Unknown]
  - Paraesthesia [Unknown]
  - Headache [Unknown]
  - Feeling hot [Unknown]
